FAERS Safety Report 5220838-0 (Version None)
Quarter: 2007Q1

REPORT INFORMATION
  Report Type: 
  Country: None (occurrence: None)
  Receive Date: 20070123
  Receipt Date: 20070108
  Transmission Date: 20070707
  Serious: Yes (Hospitalization, Other)
  Sender: FDA-Public Use
  Company Number: 15324

PATIENT
  Age: 69 Year
  Sex: Male

DRUGS (1)
  1. CARBOPLATIN [Suspect]
     Dates: start: 20061009, end: 20061030

REACTIONS (5)
  - HYPOTENSION [None]
  - LUNG DISORDER [None]
  - PNEUMOCOCCAL INFECTION [None]
  - PULMONARY TOXICITY [None]
  - THROMBOCYTOPENIA [None]
